FAERS Safety Report 7548573-4 (Version None)
Quarter: 2011Q2

REPORT INFORMATION
  Report Type: 
  Country: None (occurrence: None)
  Receive Date: 20110608
  Receipt Date: 20101230
  Transmission Date: 20111010
  Serious: No
  Sender: FDA-Public Use
  Company Number: USA/USA/10/0017011

PATIENT
  Age: 45 Year
  Sex: Female
  Weight: 95.2554 kg

DRUGS (1)
  1. FAMOTIDINE [Suspect]
     Indication: GASTROOESOPHAGEAL REFLUX DISEASE
     Dosage: 10 MG, AS REQUIRED, ORAL
     Route: 048
     Dates: start: 20101224, end: 20101224

REACTIONS (6)
  - EYE SWELLING [None]
  - PARAESTHESIA [None]
  - DRUG INEFFECTIVE [None]
  - HYPOAESTHESIA FACIAL [None]
  - HYPOAESTHESIA [None]
  - LACRIMATION INCREASED [None]
